FAERS Safety Report 16437999 (Version 1)
Quarter: 2019Q2

REPORT INFORMATION
  Report Type: Spontaneous
  Country: NO (occurrence: NO)
  Receive Date: 20190617
  Receipt Date: 20190617
  Transmission Date: 20190711
  Serious: Yes (Hospitalization)
  Sender: FDA-Public Use
  Company Number: NO-SAMSUNG BIOEPIS-SB-2019-14405

PATIENT
  Age: 34 Year
  Sex: Female

DRUGS (1)
  1. INFLIXIMAB [Suspect]
     Active Substance: INFLIXIMAB
     Indication: COLITIS ULCERATIVE
     Dosage: DOSES HAVE VARIED BETWEEN 400 MG TO 600 MG.
     Route: 041

REACTIONS (1)
  - Seizure like phenomena [Recovering/Resolving]

NARRATIVE: CASE EVENT DATE: 201805
